FAERS Safety Report 8588885-9 (Version None)
Quarter: 2012Q3

REPORT INFORMATION
  Report Type: 
  Country: None (occurrence: None)
  Receive Date: 20120813
  Receipt Date: 20120807
  Transmission Date: 20120928
  Serious: Yes (Hospitalization)
  Sender: FDA-Public Use
  Company Number: BE-PFIZER INC-2012193455

PATIENT
  Age: 52 Year
  Sex: Male
  Weight: 81.6 kg

DRUGS (7)
  1. TESTOSTERONE PHENYL PROPIONATE INJ [Concomitant]
     Indication: FOLLICLE-STIMULATING HORMONE DEFICIENCY
  2. GENOTROPIN [Suspect]
     Indication: HYPOPITUITARISM
     Dosage: 0.2 MG/DAY,7 INJECTIONS/WEEK
     Route: 058
     Dates: start: 20060301
  3. ZESTRIL [Concomitant]
     Indication: HYPERTENSION
     Dosage: UNK
     Dates: start: 20040715
  4. TESTOSTERONE PHENYL PROPIONATE INJ [Concomitant]
     Indication: LUTEINISING HORMONE DEFICIENCY
     Dosage: UNK
     Dates: start: 20060321
  5. PAROXETINE HCL [Concomitant]
     Indication: DEPRESSION
     Dosage: UNK
     Dates: start: 20030715
  6. HYDROCORTISONE [Concomitant]
     Indication: BLOOD CORTICOTROPHIN DECREASED
     Dosage: UNK
     Dates: start: 20080601
  7. LEVOTHYROXINE SODIUM [Concomitant]
     Indication: BLOOD THYROID STIMULATING HORMONE DECREASED
     Dosage: UNK
     Dates: start: 20080601

REACTIONS (1)
  - ROAD TRAFFIC ACCIDENT [None]
